FAERS Safety Report 25084607 (Version 2)
Quarter: 2025Q1

REPORT INFORMATION
  Report Type: Spontaneous
  Country: US (occurrence: US)
  Receive Date: 20250317
  Receipt Date: 20250324
  Transmission Date: 20250409
  Serious: No
  Sender: SANOFI AVENTIS
  Company Number: US-SA-2025SA074849

PATIENT
  Age: 10 Year
  Sex: Female

DRUGS (6)
  1. TZIELD [Suspect]
     Active Substance: TEPLIZUMAB-MZWV
     Indication: Diabetes prophylaxis
     Route: 042
     Dates: start: 20250310, end: 20250310
  2. TZIELD [Suspect]
     Active Substance: TEPLIZUMAB-MZWV
     Route: 065
     Dates: start: 20250311, end: 20250311
  3. TZIELD [Suspect]
     Active Substance: TEPLIZUMAB-MZWV
     Route: 065
     Dates: start: 20250312, end: 20250312
  4. TZIELD [Suspect]
     Active Substance: TEPLIZUMAB-MZWV
     Route: 065
     Dates: start: 20250313
  5. IBUPROFEN [Concomitant]
     Active Substance: IBUPROFEN
     Indication: Premedication
     Dates: start: 20250310
  6. IBUPROFEN [Concomitant]
     Active Substance: IBUPROFEN
     Indication: Antipyresis

REACTIONS (11)
  - Confusional state [Unknown]
  - Influenza like illness [Unknown]
  - Asthenia [Unknown]
  - Platelet count abnormal [Unknown]
  - Alanine aminotransferase abnormal [Unknown]
  - Aspartate aminotransferase abnormal [Unknown]
  - Malaise [Recovering/Resolving]
  - Pyrexia [Unknown]
  - Nausea [Unknown]
  - Vomiting [Unknown]
  - Fatigue [Unknown]

NARRATIVE: CASE EVENT DATE: 20250310
